FAERS Safety Report 5110787-0 (Version None)
Quarter: 2006Q3

REPORT INFORMATION
  Report Type: 
  Country: None (occurrence: None)
  Receive Date: 20060919
  Receipt Date: 20060906
  Transmission Date: 20061208
  Serious: Yes (Hospitalization, Other)
  Sender: FDA-Public Use
  Company Number: 2006101852

PATIENT
  Age: 47 Year
  Sex: Female
  Weight: 127.0072 kg

DRUGS (13)
  1. GEODON [Suspect]
     Indication: MANIA
     Dosage: 40 MG (40 MG, 1 IN 1 D)
     Dates: start: 20060902
  2. GEODON [Suspect]
     Indication: PSYCHOTIC DISORDER
     Dosage: 40 MG (40 MG, 1 IN 1 D)
     Dates: start: 20060902
  3. GEODON [Suspect]
     Indication: SUICIDAL BEHAVIOUR
     Dosage: 40 MG (40 MG, 1 IN 1 D)
     Dates: start: 20060902
  4. LITHIUM (LITHIUM) [Concomitant]
  5. DEPAKOTE [Concomitant]
  6. NAVANE [Concomitant]
  7. ALL OTHER THERAPEUTIC PRODUCTS (ALL OTHER THERAPEUTIC PRODUCTS) [Concomitant]
  8. ZYPREXA [Concomitant]
  9. PAXIL [Concomitant]
  10. THYROID TAB [Concomitant]
  11. CLONAPIN (CLONAZEPAM) [Concomitant]
  12. VITAMINS (VITAMINS) [Concomitant]
  13. CALCIUM (CALCIUM) [Concomitant]

REACTIONS (10)
  - AGGRESSION [None]
  - BLOOD THYROID STIMULATING HORMONE DECREASED [None]
  - BLOOD THYROID STIMULATING HORMONE INCREASED [None]
  - EAR INFECTION [None]
  - HYPOAESTHESIA [None]
  - LIBIDO INCREASED [None]
  - THYROID DISORDER [None]
  - THYROXINE DECREASED [None]
  - VISUAL DISTURBANCE [None]
  - WEIGHT DECREASED [None]
